FAERS Safety Report 15984545 (Version 1)
Quarter: 2019Q1

REPORT INFORMATION
  Report Type: Spontaneous
  Country: US (occurrence: US)
  Receive Date: 20190219
  Receipt Date: 20190219
  Transmission Date: 20190418
  Serious: Yes (Other)
  Sender: FDA-Public Use
  Company Number: None

PATIENT
  Age: 81 Year
  Sex: Female
  Weight: 74.88 kg

DRUGS (18)
  1. CAPECITABINE. [Suspect]
     Active Substance: CAPECITABINE
     Indication: COLON CANCER
     Dosage: ?          OTHER FREQUENCY:BID X14 DAY;?
     Route: 048
     Dates: start: 20181102
  2. AVASTIN [Concomitant]
     Active Substance: BEVACIZUMAB
  3. KLOR-CON [Concomitant]
     Active Substance: POTASSIUM CHLORIDE
  4. OXYCODONE [Concomitant]
     Active Substance: OXYCODONE
  5. SYNTHROID [Concomitant]
     Active Substance: LEVOTHYROXINE SODIUM
  6. GLIMEPIRIDE. [Concomitant]
     Active Substance: GLIMEPIRIDE
  7. ONDANSETRONE [Concomitant]
     Active Substance: ONDANSETRON
  8. ALTACE [Concomitant]
     Active Substance: RAMIPRIL
  9. ATIVAN [Concomitant]
     Active Substance: LORAZEPAM
  10. FOSAMAX [Concomitant]
     Active Substance: ALENDRONATE SODIUM
  11. FUROSEMIDE. [Concomitant]
     Active Substance: FUROSEMIDE
  12. LIDOCAINE-PRILOCAINE [Concomitant]
     Active Substance: LIDOCAINE\PRILOCAINE
  13. ZOLOFT [Concomitant]
     Active Substance: SERTRALINE HYDROCHLORIDE
  14. CARVEDIOL [Concomitant]
     Active Substance: CARVEDILOL
  15. SIMVASTATIN. [Concomitant]
     Active Substance: SIMVASTATIN
  16. VITAMIN D [Concomitant]
     Active Substance: CHOLECALCIFEROL
  17. ALDACTONE [Concomitant]
     Active Substance: SPIRONOLACTONE
  18. PROCHLORPERAZINE. [Concomitant]
     Active Substance: PROCHLORPERAZINE

REACTIONS (1)
  - Disease progression [None]

NARRATIVE: CASE EVENT DATE: 20190219
